FAERS Safety Report 5726865-9 (Version None)
Quarter: 2008Q2

REPORT INFORMATION
  Report Type: 
  Country: None (occurrence: None)
  Receive Date: 20080502
  Receipt Date: 20080424
  Transmission Date: 20081010
  Serious: Yes (Hospitalization)
  Sender: FDA-Public Use
  Company Number: US-ABBOTT-08P-163-0448978-00

PATIENT
  Sex: Female

DRUGS (10)
  1. HUMIRA [Suspect]
     Indication: RHEUMATOID ARTHRITIS
     Route: 058
  2. HUMIRA [Suspect]
     Dates: start: 20071101
  3. HUMIRA [Suspect]
  4. ALENDRONATE SODIUM [Concomitant]
     Indication: OSTEOPOROSIS PROPHYLAXIS
     Route: 048
  5. PREDNISONE [Concomitant]
     Indication: RHEUMATOID ARTHRITIS
     Route: 048
  6. ASPIRIN [Concomitant]
     Indication: CARDIAC DISORDER
     Route: 048
  7. SPIRONOLACTONE [Concomitant]
     Indication: CARDIAC DISORDER
     Route: 048
  8. LEVOTHYROXINE SODIUM [Concomitant]
     Indication: HYPOTHYROIDISM
     Dosage: .75MG EXCEPT WEDNESDAY, THEN 1 1/2 TABLETS
     Route: 048
  9. CARVEDILOL [Concomitant]
     Indication: CARDIAC DISORDER
     Route: 048
  10. LOVASTATIN [Concomitant]
     Indication: BLOOD CHOLESTEROL
     Route: 048

REACTIONS (6)
  - BRONCHITIS [None]
  - HIP ARTHROPLASTY [None]
  - HIP FRACTURE [None]
  - INCREASED TENDENCY TO BRUISE [None]
  - RHEUMATOID ARTHRITIS [None]
  - WOUND [None]
